FAERS Safety Report 6038692-6 (Version None)
Quarter: 2009Q1

REPORT INFORMATION
  Report Type: 
  Country: None (occurrence: None)
  Receive Date: 20090115
  Receipt Date: 20080926
  Transmission Date: 20090719
  Serious: No
  Sender: FDA-Public Use
  Company Number: US-BAYER-200813920BCC

PATIENT
  Age: 44 Year
  Sex: Female
  Weight: 61 kg

DRUGS (4)
  1. ALEVE (CAPLET) [Suspect]
     Indication: STRESS
     Dosage: AS USED: 220 MG  UNIT DOSE: 220 MG
     Route: 048
     Dates: start: 20080923
  2. TRI-CHLOR [Concomitant]
  3. LOVASTATIN [Concomitant]
  4. MOTRIN IB [Concomitant]

REACTIONS (1)
  - DRUG SCREEN POSITIVE [None]
